FAERS Safety Report 16272292 (Version 2)
Quarter: 2019Q2

REPORT INFORMATION
  Report Type: Spontaneous
  Country: FR (occurrence: FR)
  Receive Date: 20190506
  Receipt Date: 20190528
  Transmission Date: 20190711
  Serious: Yes (Hospitalization)
  Sender: FDA-Public Use
  Company Number: FR-TEVA-2019-FR-1045960

PATIENT
  Age: 75 Year
  Sex: Female

DRUGS (12)
  1. ACIDE FOLIQUE [Concomitant]
     Active Substance: FOLIC ACID
  2. OLANZAPINE. [Concomitant]
     Active Substance: OLANZAPINE
  3. DEPAMIDE [Concomitant]
     Active Substance: VALPROMIDE
  4. SERESTA [Concomitant]
     Active Substance: OXAZEPAM
  5. PARACETAMOL [Concomitant]
     Active Substance: ACETAMINOPHEN
  6. BISOCE [Concomitant]
     Active Substance: BISOPROLOL
  7. LEVETIRACETAM. [Suspect]
     Active Substance: LEVETIRACETAM
     Route: 065
  8. MOVICOL [Concomitant]
     Active Substance: POLYETHYLENE GLYCOL 3350\POTASSIUM CHLORIDE\SODIUM BICARBONATE\SODIUM CHLORIDE
  9. TEGRETOL [Concomitant]
     Active Substance: CARBAMAZEPINE
  10. DIFFU K [Concomitant]
     Active Substance: POTASSIUM CHLORIDE
  11. CALCIDOSE VITAMINE D, POUDRE ORALE EN SACHET-DOSE [Concomitant]
     Active Substance: CALCIUM\CHOLECALCIFEROL
     Dosage: SACHET-DOSE
  12. CEFTRIAXONE BASE [Suspect]
     Active Substance: CEFTRIAXONE
     Indication: URINARY TRACT INFECTION
     Route: 042
     Dates: start: 20190328, end: 20190408

REACTIONS (1)
  - Anaemia [Recovering/Resolving]

NARRATIVE: CASE EVENT DATE: 20190408
